FAERS Safety Report 24703172 (Version 1)
Quarter: 2024Q4

REPORT INFORMATION
  Report Type: Spontaneous
  Country: DE (occurrence: DE)
  Receive Date: 20241205
  Receipt Date: 20241205
  Transmission Date: 20250115
  Serious: Yes (Other)
  Sender: MERCK
  Company Number: DE-Eisai-EC-2024-179341

PATIENT
  Age: 69 Year
  Sex: Female

DRUGS (2)
  1. PEMBROLIZUMAB [Suspect]
     Active Substance: PEMBROLIZUMAB
     Indication: Metastatic renal cell carcinoma
     Dosage: DOSE AND FREQUENCY UNKNOWN
     Route: 042
     Dates: start: 202311, end: 20241112
  2. LENVATINIB [Suspect]
     Active Substance: LENVATINIB
     Indication: Metastatic renal cell carcinoma
     Route: 048
     Dates: start: 202311, end: 20241112

REACTIONS (4)
  - Posterior reversible encephalopathy syndrome [Unknown]
  - Hallucination [Not Recovered/Not Resolved]
  - Headache [Not Recovered/Not Resolved]
  - Confusional state [Not Recovered/Not Resolved]

NARRATIVE: CASE EVENT DATE: 20241001
